FAERS Safety Report 22162495 (Version 2)
Quarter: 2023Q2

REPORT INFORMATION
  Report Type: Spontaneous
  Country: US (occurrence: US)
  Receive Date: 20230331
  Receipt Date: 20230619
  Transmission Date: 20230721
  Serious: No
  Sender: FDA-Public Use
  Company Number: US-JNJFOC-20230345383

PATIENT
  Age: 31 Year
  Sex: Female

DRUGS (4)
  1. PEPCID AC MAXIMUM STRENGTH [Suspect]
     Active Substance: FAMOTIDINE
     Indication: Antacid therapy
     Dosage: 1 CAPLET
     Route: 048
     Dates: start: 20230315
  2. VANCOMYCIN [Concomitant]
     Active Substance: VANCOMYCIN
     Indication: Product used for unknown indication
     Route: 065
  3. PLEXUS PROBIO 5 [Concomitant]
     Indication: Product used for unknown indication
     Route: 065
  4. KELNOR 1/35 [Concomitant]
     Active Substance: ETHINYL ESTRADIOL\ETHYNODIOL DIACETATE
     Indication: Product used for unknown indication
     Route: 065

REACTIONS (4)
  - Hypoaesthesia oral [Not Recovered/Not Resolved]
  - Dizziness [Not Recovered/Not Resolved]
  - Feeling abnormal [Not Recovered/Not Resolved]
  - Pharyngeal hypoaesthesia [Unknown]

NARRATIVE: CASE EVENT DATE: 20230101
